FAERS Safety Report 24568156 (Version 1)
Quarter: 2024Q4

REPORT INFORMATION
  Report Type: Spontaneous
  Country: US (occurrence: US)
  Receive Date: 20241031
  Receipt Date: 20241031
  Transmission Date: 20250115
  Serious: Yes (Hospitalization, Other)
  Sender: GLENMARK
  Company Number: US-MLMSERVICE-20241015-PI227026-00323-3

PATIENT

DRUGS (3)
  1. TRIAMCINOLONE ACETONIDE [Suspect]
     Active Substance: TRIAMCINOLONE ACETONIDE
     Indication: Osteoarthritis
     Dosage: UNK (FORMULATION: INJECTION), INTRAARTICULAR KNEE INJECTION
     Route: 014
     Dates: start: 2022
  2. CARBOXYMETHYLCELLULOSE [Suspect]
     Active Substance: CARBOXYMETHYLCELLULOSE
     Indication: Osteoarthritis
     Dosage: UNK, INTRAARTICULAR SHOULDER INJECTION
     Route: 014
     Dates: start: 201912
  3. BUPIVACAINE [Concomitant]
     Active Substance: BUPIVACAINE
     Indication: Osteoarthritis
     Dosage: UNK, INTRAARTICULAR INJECTION
     Route: 014
     Dates: start: 2022

REACTIONS (3)
  - Anaphylactic reaction [Unknown]
  - Allergic reaction to excipient [Unknown]
  - Type I hypersensitivity [Unknown]

NARRATIVE: CASE EVENT DATE: 20220101
